FAERS Safety Report 5051151-2 (Version None)
Quarter: 2006Q3

REPORT INFORMATION
  Report Type: 
  Country: None (occurrence: None)
  Receive Date: 20060714
  Receipt Date: 20060529
  Transmission Date: 20061208
  Serious: Yes (Hospitalization)
  Sender: FDA-Public Use
  Company Number: JP-NOVOPROD-253699

PATIENT
  Age: 77 Year
  Sex: Female
  Weight: 50 kg

DRUGS (14)
  1. BASEN [Concomitant]
     Dosage: .9 MG, QD
     Route: 048
     Dates: start: 20051203
  2. INNOLET 30R CHU [Suspect]
     Indication: INSULIN-REQUIRING TYPE II DIABETES MELLITUS
     Dosage: 26 IU, QD
     Route: 058
     Dates: start: 20050921, end: 20051030
  3. NOVORAPID 30 MIX CHU FLEXPEN [Concomitant]
     Indication: INSULIN-REQUIRING TYPE II DIABETES MELLITUS
     Dosage: 26 IU, QD
     Route: 058
     Dates: start: 20040909, end: 20050920
  4. NOVOLIN R [Concomitant]
     Indication: INSULIN-REQUIRING TYPE II DIABETES MELLITUS
     Dosage: 28 IU, PRN
     Route: 058
     Dates: start: 20051031
  5. URSO [Concomitant]
     Dosage: 300 MG, UNK
     Route: 048
     Dates: start: 20041225
  6. ADALAT [Concomitant]
     Dosage: 40 MG, QD
     Route: 048
     Dates: start: 20040820
  7. BLOPRESS [Concomitant]
     Dosage: 8 MG, QD
     Route: 048
  8. ASPIRIN [Concomitant]
     Dosage: 100 MG, QD
     Route: 048
     Dates: start: 20030103
  9. MAGNESIUM                          /00552801/ [Concomitant]
     Dosage: 1 G, UNK
     Route: 048
     Dates: start: 20050622
  10. MYSLEE [Concomitant]
     Dosage: 5 MG, UNK
     Dates: start: 20041215
  11. NORVASC                            /00972402/ [Concomitant]
     Dosage: 5 MG, QD
     Route: 048
     Dates: start: 20030103
  12. AMARYL [Concomitant]
     Dosage: 6 MG, QD
     Route: 048
     Dates: start: 20041224
  13. ACTOS                              /01460202/ [Concomitant]
     Dosage: 15 MG, QD
     Route: 048
     Dates: start: 20040824
  14. PREDNISOLONE [Concomitant]
     Dosage: 30 MG, QD
     Route: 048
     Dates: start: 20051014

REACTIONS (4)
  - ANTI-INSULIN ANTIBODY POSITIVE [None]
  - HYPERGLYCAEMIA [None]
  - HYPOGLYCAEMIA [None]
  - PHARMACEUTICAL PRODUCT COMPLAINT [None]
